FAERS Safety Report 10251844 (Version 2)
Quarter: 2014Q4

REPORT INFORMATION
  Report Type: Spontaneous
  Country: US (occurrence: US)
  Receive Date: 20140623
  Receipt Date: 20141024
  Transmission Date: 20150528
  Serious: Yes (Other)
  Sender: FDA-Public Use
  Company Number: US-ROCHE-1421898

PATIENT
  Age: 54 Year
  Sex: Male

DRUGS (11)
  1. PAXIL (UNITED STATES) [Concomitant]
     Indication: DEPRESSION
  2. RANITIDINE [Concomitant]
     Active Substance: RANITIDINE\RANITIDINE HYDROCHLORIDE
  3. RIBAVIRIN. [Suspect]
     Active Substance: RIBAVIRIN
     Dosage: DOSE REDUCED
     Route: 065
  4. PEGINTERFERON ALFA-2A [Suspect]
     Active Substance: PEGINTERFERON ALFA-2A
     Indication: CHRONIC HEPATITIS C
     Dosage: 0.5 ML
     Route: 058
     Dates: start: 201401
  5. BUSPIRONE [Concomitant]
     Active Substance: BUSPIRONE HYDROCHLORIDE
  6. MELOXICAM. [Concomitant]
     Active Substance: MELOXICAM
  7. RIBAVIRIN. [Suspect]
     Active Substance: RIBAVIRIN
     Indication: CHRONIC HEPATITIS C
     Route: 065
     Dates: start: 201401
  8. DIVALPROEX [Concomitant]
     Active Substance: DIVALPROEX SODIUM
  9. CLONAZEPAM. [Concomitant]
     Active Substance: CLONAZEPAM
     Route: 065
  10. SOVALDI [Suspect]
     Active Substance: SOFOSBUVIR
     Indication: CHRONIC HEPATITIS C
     Dosage: DURATION 61 DAYS
     Route: 065
     Dates: start: 2014
  11. HYDROXYZINE [Concomitant]
     Active Substance: HYDROXYZINE\HYDROXYZINE HYDROCHLORIDE

REACTIONS (9)
  - Mental disorder [Unknown]
  - Weight decreased [Unknown]
  - Decreased appetite [Unknown]
  - Ear haemorrhage [Unknown]
  - Lip pain [Unknown]
  - Depression [Unknown]
  - Dry skin [Unknown]
  - Haemoglobin decreased [Unknown]
  - Nasal dryness [Unknown]
